FAERS Safety Report 7669018-X (Version None)
Quarter: 2011Q3

REPORT INFORMATION
  Report Type: 
  Country: None (occurrence: None)
  Receive Date: 20110808
  Receipt Date: 20110729
  Transmission Date: 20111222
  Serious: Yes (Other)
  Sender: FDA-Public Use
  Company Number: US-BAYER-2011-014118

PATIENT
  Age: 25 Year
  Sex: Female
  Weight: 158.73 kg

DRUGS (13)
  1. SINGULAIR [Concomitant]
     Dosage: 10 MG, UNK
     Dates: start: 20081104
  2. ABILIFY [Concomitant]
     Dosage: 15 MG, UNK
     Dates: start: 20081202
  3. PHENERGAN HCL [Concomitant]
     Dosage: UNK
     Dates: start: 20090301
  4. ADVAIR DISKUS 100/50 [Concomitant]
     Dosage: UNK
     Dates: start: 20081104
  5. PIROXICAM [Concomitant]
     Dosage: 20 MG, UNK
     Dates: start: 20081124
  6. TRAMADOL HCL [Concomitant]
     Dosage: 50 MG, UNK
     Dates: start: 20081208
  7. HYDROXYZINE HCL [Concomitant]
     Dosage: UNK
     Dates: start: 20090226
  8. METFORMIN HCL [Concomitant]
     Dosage: UNK
     Dates: start: 20081104
  9. PROZAC [Concomitant]
     Dosage: 20 MG, BID
     Dates: start: 20081201
  10. ALBUTEROL SULFATE AUTOHALER [Concomitant]
     Dosage: UNK
     Dates: start: 20081104
  11. YAZ [Suspect]
     Indication: ACNE
     Dosage: UNK
     Dates: start: 20070101, end: 20090101
  12. DUONEB [Concomitant]
     Dosage: UNK
     Dates: start: 20081104
  13. ORTHO TRI-CYCLEN [Concomitant]
     Dosage: UNK
     Dates: start: 20090501, end: 20090601

REACTIONS (3)
  - CHOLECYSTITIS CHRONIC [None]
  - CHOLELITHIASIS [None]
  - GALLBLADDER DISORDER [None]
